FAERS Safety Report 24182916 (Version 1)
Quarter: 2024Q3

REPORT INFORMATION
  Report Type: Spontaneous
  Country: US (occurrence: US)
  Receive Date: 20240807
  Receipt Date: 20240807
  Transmission Date: 20241016
  Serious: Yes (Hospitalization)
  Sender: MACLEODS
  Company Number: US-MACLEODS PHARMA-MAC2024048589

PATIENT
  Age: 73 Year
  Sex: Female
  Weight: 52.16 kg

DRUGS (1)
  1. OLMESARTAN [Suspect]
     Active Substance: OLMESARTAN
     Indication: Hypertension
     Dates: start: 20240626, end: 20240717

REACTIONS (7)
  - Vision blurred [Recovering/Resolving]
  - Muscular weakness [Recovering/Resolving]
  - Abdominal discomfort [Recovering/Resolving]
  - Fatigue [Recovered/Resolved]
  - Dizziness [Recovering/Resolving]
  - Asthenia [Recovered/Resolved]
  - Chills [Recovering/Resolving]
